FAERS Safety Report 5399332-2 (Version None)
Quarter: 2007Q3

REPORT INFORMATION
  Report Type: 
  Country: None (occurrence: None)
  Receive Date: 20070727
  Receipt Date: 20070717
  Transmission Date: 20080115
  Serious: Yes (Disabling)
  Sender: FDA-Public Use
  Company Number: NZ-ROCHE-448259

PATIENT
  Age: 68 Year
  Sex: Male
  Weight: 69 kg

DRUGS (3)
  1. XELODA [Suspect]
     Route: 048
     Dates: start: 20060308, end: 20060322
  2. XELODA [Suspect]
     Route: 048
     Dates: start: 20060328, end: 20060406
  3. VITAMIN B6 [Concomitant]
     Dates: start: 20060323

REACTIONS (12)
  - AGEUSIA [None]
  - ANOREXIA [None]
  - CONSTIPATION [None]
  - FATIGUE [None]
  - HAIR DISORDER [None]
  - LACRIMATION INCREASED [None]
  - NAUSEA [None]
  - NEUROPATHY PERIPHERAL [None]
  - PALMAR-PLANTAR ERYTHRODYSAESTHESIA SYNDROME [None]
  - PARAESTHESIA [None]
  - RASH ERYTHEMATOUS [None]
  - RHINORRHOEA [None]
